FAERS Safety Report 8790562 (Version 1)
Quarter: 2012Q4

REPORT INFORMATION
  Report Type: Spontaneous
  Country: US (occurrence: None)
  Receive Date: 20120912
  Receipt Date: 20120912
  Transmission Date: 20130627
  Serious: Yes (Hospitalization)
  Sender: FDA-Public Use
  Company Number: None

PATIENT
  Age: 63 Year
  Sex: Male
  Weight: 106.3 kg

DRUGS (3)
  1. ALIMTA [Suspect]
     Indication: LUNG CANCER
     Dates: start: 20120717
  2. CARBOPLATIN [Suspect]
     Dates: start: 20120717
  3. AVASTIN [Suspect]
     Dates: start: 20120717

REACTIONS (4)
  - Loss of consciousness [None]
  - Fall [None]
  - Head injury [None]
  - Anaemia [None]
